FAERS Safety Report 10908006 (Version 1)
Quarter: 2015Q1

REPORT INFORMATION
  Report Type: Other
  Country: US (occurrence: US)
  Receive Date: 20150312
  Receipt Date: 20150312
  Transmission Date: 20150721
  Serious: Yes (Hospitalization)
  Sender: FDA-Public Use
  Company Number: US-UNITED THERAPEUTICS-UNT-2015-001301

PATIENT
  Age: 69 Year
  Sex: Male
  Weight: 65.76 kg

DRUGS (4)
  1. ADCIRCA [Concomitant]
     Active Substance: TADALAFIL
     Indication: PRODUCT USED FOR UNKNOWN INDICATION
  2. REMODULIN [Suspect]
     Active Substance: TREPROSTINIL
     Dosage: 0.052 ?G/KG, CONTINUING
     Route: 058
     Dates: start: 20111215
  3. TRACLEER [Concomitant]
     Active Substance: BOSENTAN\BOSENTAN MONOHYDRATE
     Indication: PRODUCT USED FOR UNKNOWN INDICATION
  4. REMODULIN [Suspect]
     Active Substance: TREPROSTINIL
     Indication: PULMONARY HYPERTENSION
     Dosage: 0.052 ?G/KG, CONTINUING
     Route: 058
     Dates: start: 20111215

REACTIONS (7)
  - Flank pain [Unknown]
  - Sepsis [Unknown]
  - Right ventricular failure [Unknown]
  - Cardiac failure congestive [Unknown]
  - Clostridium difficile infection [Unknown]
  - Liver disorder [Unknown]
  - Device issue [Unknown]

NARRATIVE: CASE EVENT DATE: 20150122
